FAERS Safety Report 18078353 (Version 1)
Quarter: 2020Q3

REPORT INFORMATION
  Report Type: Spontaneous
  Country: US (occurrence: US)
  Receive Date: 20200727
  Receipt Date: 20200727
  Transmission Date: 20201103
  Serious: Yes (Hospitalization)
  Sender: FDA-Public Use
  Company Number: None

PATIENT
  Age: 34 Year
  Sex: Female
  Weight: 75.6 kg

DRUGS (5)
  1. TRAZODONE [Concomitant]
     Active Substance: TRAZODONE HYDROCHLORIDE
  2. COGENTIN [Suspect]
     Active Substance: BENZTROPINE MESYLATE
  3. PROBIOTIC [Concomitant]
     Active Substance: PROBIOTICS NOS
  4. ABILIFY [Suspect]
     Active Substance: ARIPIPRAZOLE
     Indication: SCHIZOPHRENIA
     Dosage: ?          QUANTITY:2 TABLET(S);?
     Route: 048
     Dates: start: 20200715, end: 20200721
  5. DEPAKOTE [Concomitant]
     Active Substance: DIVALPROEX SODIUM

REACTIONS (5)
  - Migraine [None]
  - Irritability [None]
  - Epistaxis [None]
  - Abdominal pain upper [None]
  - Cerebral atrophy [None]

NARRATIVE: CASE EVENT DATE: 20200715
